APPROVED DRUG PRODUCT: GLIMEPIRIDE
Active Ingredient: GLIMEPIRIDE
Strength: 4MG
Dosage Form/Route: TABLET;ORAL
Application: A091220 | Product #004 | TE Code: AB
Applicant: MICRO LABS LTD
Approved: Jun 29, 2012 | RLD: No | RS: No | Type: RX